FAERS Safety Report 7380625-4 (Version None)
Quarter: 2011Q1

REPORT INFORMATION
  Report Type: 
  Country: None (occurrence: None)
  Receive Date: 20110329
  Receipt Date: 20110323
  Transmission Date: 20110831
  Serious: Yes (Other)
  Sender: FDA-Public Use
  Company Number: DE-PFIZER INC-2011045246

PATIENT
  Age: 51 Year
  Sex: Female
  Weight: 170 kg

DRUGS (2)
  1. AROMASIN [Suspect]
     Indication: BREAST CANCER
     Dosage: 25 MG, 1X/DAY
     Route: 048
     Dates: start: 20101105
  2. RIZATRIPTAN [Interacting]
     Indication: MIGRAINE
     Dosage: 10 MG, AS NEEDED
     Route: 048

REACTIONS (2)
  - DRUG INTERACTION [None]
  - ARTHRALGIA [None]
